FAERS Safety Report 8186665-X (Version None)
Quarter: 2012Q1

REPORT INFORMATION
  Report Type: 
  Country: None (occurrence: None)
  Receive Date: 20120305
  Receipt Date: 20120305
  Transmission Date: 20120608
  Serious: Yes (Hospitalization)
  Sender: FDA-Public Use
  Company Number: None

PATIENT
  Sex: Male
  Weight: 69.4 kg

DRUGS (20)
  1. BACITRACIN [Concomitant]
  2. POTASSIUM CHLORIDE [Concomitant]
  3. CHLORTHALIDONE [Concomitant]
  4. PANCREALIPASE [Concomitant]
  5. SENNA [Concomitant]
  6. LINEZOLID [Concomitant]
  7. METHADON HCL TAB [Concomitant]
  8. AMLODIPINE [Concomitant]
  9. DOCUSATE [Concomitant]
  10. GEMCITABINE [Suspect]
     Indication: PANCREATIC CARCINOMA
     Dosage: IV
     Route: 042
     Dates: start: 20120130
  11. GEMCITABINE [Suspect]
     Indication: PANCREATIC CARCINOMA
     Dosage: IV
     Route: 042
     Dates: start: 20120123
  12. MEGESTROL ACETATE [Concomitant]
  13. MIRALAX [Concomitant]
  14. ERLOTINIB HYDROCHLORIDE [Suspect]
     Indication: PANCREATIC CARCINOMA
     Dosage: ERLOTINIB 150 MG QD PO
     Route: 048
     Dates: start: 20120215
  15. ERLOTINIB HYDROCHLORIDE [Suspect]
     Indication: PANCREATIC CARCINOMA
     Dosage: ERLOTINIB 150 MG QD PO
     Route: 048
     Dates: start: 20120123
  16. HYDROMORPHONE HCL [Concomitant]
  17. METOPROLOL SUCCINATE [Concomitant]
  18. LISINOPRIL [Concomitant]
  19. MAXIFLOXACIN [Concomitant]
  20. PANTOPRAZOLE [Concomitant]

REACTIONS (9)
  - DIALYSIS [None]
  - DEHYDRATION [None]
  - ASTERIXIS [None]
  - MYOCLONUS [None]
  - ABDOMINAL PAIN [None]
  - RENAL FAILURE ACUTE [None]
  - HALLUCINATION [None]
  - NAUSEA [None]
  - METABOLIC ALKALOSIS [None]
